FAERS Safety Report 8003025-2 (Version None)
Quarter: 2011Q4

REPORT INFORMATION
  Report Type: 
  Country: None (occurrence: None)
  Receive Date: 20111222
  Receipt Date: 20110914
  Transmission Date: 20120403
  Serious: No
  Sender: FDA-Public Use
  Company Number: US-GLAXOSMITHKLINE-A0944626A

PATIENT
  Age: 71 Year
  Sex: Male

DRUGS (7)
  1. AVODART [Suspect]
     Indication: BENIGN PROSTATIC HYPERPLASIA
     Dosage: 1CAP PER DAY
     Route: 048
     Dates: start: 20011101
  2. TAMSULOSIN HCL [Concomitant]
  3. MULTI-VITAMIN [Concomitant]
  4. CALCIUM CARBONATE [Concomitant]
  5. VITAMIN C [Concomitant]
  6. ASPIRIN [Concomitant]
  7. SAW PALMETTO [Concomitant]

REACTIONS (2)
  - PRODUCT QUALITY ISSUE [None]
  - ORAL DISCOMFORT [None]
